FAERS Safety Report 6201182-1 (Version None)
Quarter: 2009Q2

REPORT INFORMATION
  Report Type: 
  Country: None (occurrence: None)
  Receive Date: 20090526
  Receipt Date: 20090519
  Transmission Date: 20091009
  Serious: Yes (Other)
  Sender: FDA-Public Use
  Company Number: CA-ASTRAZENECA-2009UW09256

PATIENT
  Age: 63 Year
  Sex: Male

DRUGS (2)
  1. PULMICORT [Suspect]
     Route: 055
  2. PULMICORT [Suspect]
     Dosage: 1 PUFF BID
     Route: 055

REACTIONS (3)
  - COUGH [None]
  - DRUG INEFFECTIVE [None]
  - DYSPNOEA [None]
